FAERS Safety Report 9925140 (Version 1)
Quarter: 2014Q1

REPORT INFORMATION
  Report Type: Spontaneous
  Country: US (occurrence: None)
  Receive Date: 20140225
  Receipt Date: 20140225
  Transmission Date: 20141002
  Serious: Yes (Other)
  Sender: FDA-Public Use
  Company Number: None

PATIENT
  Age: 56 Year
  Sex: Female
  Weight: 117.03 kg

DRUGS (1)
  1. BELVIQ [Suspect]
     Indication: OBESITY
     Dosage: 2 PILLS TWICE DAILY
     Route: 048
     Dates: start: 20140211, end: 20140220

REACTIONS (1)
  - Headache [None]
